FAERS Safety Report 5511018-X (Version None)
Quarter: 2007Q4

REPORT INFORMATION
  Report Type: 
  Country: None (occurrence: None)
  Receive Date: 20071109
  Receipt Date: 20071029
  Transmission Date: 20080405
  Serious: Yes (Hospitalization)
  Sender: FDA-Public Use
  Company Number: SK-WYE-H00700207

PATIENT
  Age: 50 Year
  Sex: Female

DRUGS (4)
  1. EFFEXOR XR [Suspect]
     Indication: DEPRESSION
     Dosage: OVERDOSE AMOUNT UNKNOWN
     Route: 048
     Dates: start: 20071016, end: 20071016
  2. WELLBUTRIN [Suspect]
     Dosage: OVERDOSE AMOUNT UNKNOWN
     Route: 065
     Dates: start: 20071016, end: 20071016
  3. CYMBALTA [Suspect]
     Dosage: OVERDOSE AMOUNT UNKNOWN
     Route: 065
     Dates: start: 20071016, end: 20071016
  4. TISERCIN [Suspect]
     Dosage: OVERDOSE AMOUNT UNKNOWN
     Route: 065
     Dates: start: 20071016, end: 20071016

REACTIONS (3)
  - DRUG TOXICITY [None]
  - INTENTIONAL OVERDOSE [None]
  - SUICIDE ATTEMPT [None]
